FAERS Safety Report 20784821 (Version 1)
Quarter: 2022Q2

REPORT INFORMATION
  Report Type: Spontaneous
  Country: US (occurrence: US)
  Receive Date: 20220504
  Receipt Date: 20220504
  Transmission Date: 20220721
  Serious: No
  Sender: FDA-Public Use
  Company Number: US-PFIZER INC-202200048486

PATIENT
  Age: 85 Year
  Sex: Female
  Weight: 78.02 kg

DRUGS (12)
  1. TOVIAZ [Suspect]
     Active Substance: FESOTERODINE FUMARATE
     Indication: Incontinence
     Dosage: 8 MG, 1X/DAY [8MG TABLET ONCE A DAY AT NIGHT]
     Dates: start: 201901
  2. TOVIAZ [Suspect]
     Active Substance: FESOTERODINE FUMARATE
     Dosage: 4 MG, 1X/DAY [TOVIAZ 8MG TABLET NIGHTLY, BUT TAKING ONLY HALF TABLET NIGHTLY]
     Dates: start: 20220104
  3. TOVIAZ [Suspect]
     Active Substance: FESOTERODINE FUMARATE
     Dosage: 4 MG, 1X/DAY [1/2 TABLET ONCE A DAY AT NIGHT]
     Dates: start: 201901
  4. AMLODIPINE BESYLATE [Concomitant]
     Active Substance: AMLODIPINE BESYLATE
     Indication: Blood pressure measurement
     Dosage: 25 MG, 1X/DAY (25MG PILL ONCE DAILY)
  5. ATENOLOL [Concomitant]
     Active Substance: ATENOLOL
     Indication: Blood pressure measurement
     Dosage: 12.5 MG, 1X/DAY [HALF A PILL TAKEN ONCE DAILY]
  6. ESCITALOPRAM [Concomitant]
     Active Substance: ESCITALOPRAM OXALATE
     Dosage: 5 MG, 1X/DAY (ONCE A DAY AT NIGHT TIME)
  7. OMEPRAZOLE [Concomitant]
     Active Substance: OMEPRAZOLE
     Indication: Gastrooesophageal reflux disease
     Dosage: 1 DF, DAILY (1 PILL IN THE NIGHT TIME DAILY)
  8. LEVOTHYROXINE [Concomitant]
     Active Substance: LEVOTHYROXINE
     Indication: Thyroid disorder
     Dosage: 25 MG, 1X/DAY [ONCE DAILY IN THE MORNING BEFORE BREAKFAST]
  9. DEXILANT [Concomitant]
     Active Substance: DEXLANSOPRAZOLE
     Indication: Gastrooesophageal reflux disease
     Dosage: 60 MG, DAILY [ONE IN THE MORNING BEFORE BREAKFAST DAILY]
  10. POTASSIUM [Concomitant]
     Active Substance: POTASSIUM
     Indication: Fluid retention
     Dosage: 250 MG, DAILY
  11. MAGNESIUM [Concomitant]
     Active Substance: MAGNESIUM
     Dosage: UNK
     Dates: start: 20211027
  12. HYDROCHLOROTHIAZIDE [Concomitant]
     Active Substance: HYDROCHLOROTHIAZIDE
     Indication: Fluid retention
     Dosage: 12.5 MG, 1X/DAY (12.5MG CAPSULE TAKEN ONCE DAILY)
     Dates: start: 20211027

REACTIONS (7)
  - Illness [Recovering/Resolving]
  - Fatigue [Recovering/Resolving]
  - Headache [Recovering/Resolving]
  - Nausea [Unknown]
  - Hyperhidrosis [Unknown]
  - Abdominal discomfort [Recovering/Resolving]
  - Intentional product use issue [Not Recovered/Not Resolved]

NARRATIVE: CASE EVENT DATE: 20220101
